FAERS Safety Report 6566187-X (Version None)
Quarter: 2010Q1

REPORT INFORMATION
  Report Type: 
  Country: None (occurrence: None)
  Receive Date: 20100202
  Receipt Date: 20100121
  Transmission Date: 20100710
  Serious: Yes (Hospitalization)
  Sender: FDA-Public Use
  Company Number: JP-BAYER-200914589BYL

PATIENT
  Age: 79 Year
  Sex: Male
  Weight: 78 kg

DRUGS (12)
  1. NEXAVAR [Suspect]
     Indication: RENAL CELL CARCINOMA
     Dosage: TOTAL DAILY DOSE: 400 MG  UNIT DOSE: 200 MG
     Route: 048
     Dates: start: 20091113, end: 20091121
  2. LASIX [Concomitant]
     Route: 065
     Dates: start: 20060101
  3. ALDACTONE [Concomitant]
     Route: 048
     Dates: start: 20060101
  4. ARTIST [Concomitant]
     Route: 048
     Dates: start: 20060101
  5. ASPIRIN [Concomitant]
     Dosage: UNIT DOSE: 100 MG
     Route: 048
     Dates: start: 20060101
  6. DIOVAN [Concomitant]
     Route: 048
  7. GASTER [Concomitant]
     Route: 065
  8. ALOSITOL [Concomitant]
     Route: 048
     Dates: start: 20060101
  9. AMARYL [Concomitant]
     Route: 048
     Dates: start: 20060101
  10. WARFARIN SODIUM [Concomitant]
     Route: 048
     Dates: start: 20060101
  11. LIPITOR [Concomitant]
     Route: 048
     Dates: start: 20060101
  12. INTRON A [Concomitant]
     Route: 030
     Dates: start: 20060701, end: 20091001

REACTIONS (2)
  - HEPATIC FUNCTION ABNORMAL [None]
  - RENAL IMPAIRMENT [None]
